FAERS Safety Report 5934247-X (Version None)
Quarter: 2008Q4

REPORT INFORMATION
  Report Type: 
  Country: None (occurrence: None)
  Receive Date: 20081027
  Receipt Date: 20081009
  Transmission Date: 20090506
  Serious: Yes (Hospitalization)
  Sender: FDA-Public Use
  Company Number: SPV1-2008-01452

PATIENT
  Age: 12 Year
  Sex: Female
  Weight: 69.8 kg

DRUGS (2)
  1. VYVANSE [Suspect]
     Indication: ATTENTION DEFICIT/HYPERACTIVITY DISORDER
     Dosage: 30 MG, 1X/DAY;QD, ORAL
     Route: 048
     Dates: start: 20080703, end: 20080703
  2. LEXAPRO [Concomitant]

REACTIONS (4)
  - ASTHENIA [None]
  - CARDIAC ARREST [None]
  - FALL [None]
  - PALPITATIONS [None]
